FAERS Safety Report 17914067 (Version 3)
Quarter: 2020Q2

REPORT INFORMATION
  Report Type: Report from Study
  Country: US (occurrence: US)
  Receive Date: 20200619
  Receipt Date: 20200629
  Transmission Date: 20200714
  Serious: Yes (Other)
  Sender: FDA-Public Use
  Company Number: US-BEH-2020118719

PATIENT
  Sex: Female

DRUGS (1)
  1. HUMAN IMMUNOGLOBULIN (GENERIC) [Suspect]
     Active Substance: HUMAN IMMUNOGLOBULIN G
     Indication: NEONATAL HAEMOCHROMATOSIS
     Dosage: 1 GRAM PER KILOGRAM
     Route: 042

REACTIONS (3)
  - No adverse event [Unknown]
  - Stillbirth [Unknown]
  - Product use in unapproved indication [Unknown]
